FAERS Safety Report 10268956 (Version 1)
Quarter: 2014Q2

REPORT INFORMATION
  Report Type: Spontaneous
  Country: US (occurrence: US)
  Receive Date: 20140630
  Receipt Date: 20140630
  Transmission Date: 20141212
  Serious: No
  Sender: FDA-Public Use
  Company Number: US-009507513-1406USA012802

PATIENT
  Sex: Male

DRUGS (1)
  1. COPPERTONE SPORT LOTION SPF 100+ [Suspect]
     Indication: PRODUCT USED FOR UNKNOWN INDICATION
     Dosage: UNK, UNKNOWN
     Route: 061
     Dates: start: 201406

REACTIONS (3)
  - Hypersensitivity [Unknown]
  - Dyspnoea [Unknown]
  - Application site swelling [Unknown]
